FAERS Safety Report 11591791 (Version 3)
Quarter: 2018Q1

REPORT INFORMATION
  Report Type: Spontaneous
  Country: IT (occurrence: IT)
  Receive Date: 20151005
  Receipt Date: 20180215
  Transmission Date: 20180508
  Serious: Yes (Other)
  Sender: FDA-Public Use
  Company Number: IT-009507513-1509ITA014098

PATIENT
  Age: 60 Year
  Sex: Female

DRUGS (3)
  1. CELSENTRI [Suspect]
     Active Substance: MARAVIROC
     Dosage: 300 MG DAILY
     Route: 048
     Dates: start: 201505, end: 201509
  2. ISENTRESS [Suspect]
     Active Substance: RALTEGRAVIR POTASSIUM
     Indication: ACUTE HIV INFECTION
     Dosage: 1 DOSE (UNIT) DAILY
     Dates: start: 2013, end: 201509
  3. CELSENTRI [Suspect]
     Active Substance: MARAVIROC
     Indication: ACUTE HIV INFECTION
     Dosage: 600 MG DAILY
     Route: 048
     Dates: start: 2013, end: 201505

REACTIONS (6)
  - Oedema peripheral [Recovered/Resolved]
  - Gait inability [Recovered/Resolved]
  - Transaminases increased [Recovered/Resolved]
  - Dizziness [Recovered/Resolved]
  - Nausea [Recovered/Resolved]
  - Vomiting [Recovered/Resolved]

NARRATIVE: CASE EVENT DATE: 20150901
